FAERS Safety Report 12610203 (Version 1)
Quarter: 2016Q3

REPORT INFORMATION
  Report Type: Spontaneous
  Country: US (occurrence: US)
  Receive Date: 20160801
  Receipt Date: 20160801
  Transmission Date: 20161109
  Serious: No
  Sender: FDA-Public Use
  Company Number: US-BIOGEN-2016BI00271750

PATIENT
  Sex: Female

DRUGS (1)
  1. TYSABRI [Suspect]
     Active Substance: NATALIZUMAB
     Indication: MULTIPLE SCLEROSIS
     Route: 065
     Dates: start: 20130815

REACTIONS (9)
  - Weight decreased [Unknown]
  - Hypersomnia [Unknown]
  - General physical health deterioration [Unknown]
  - Anxiety [Unknown]
  - Insomnia [Unknown]
  - Abdominal pain upper [Unknown]
  - Mobility decreased [Unknown]
  - Hypoaesthesia [Unknown]
  - Cognitive disorder [Unknown]
